FAERS Safety Report 8128422-6 (Version None)
Quarter: 2012Q1

REPORT INFORMATION
  Report Type: 
  Country: None (occurrence: None)
  Receive Date: 20120210
  Receipt Date: 20120130
  Transmission Date: 20120608
  Serious: Yes (Hospitalization)
  Sender: FDA-Public Use
  Company Number: DE-ROCHE-1002764

PATIENT
  Sex: Male
  Weight: 95 kg

DRUGS (18)
  1. FOLSAN [Concomitant]
     Indication: PREMEDICATION
     Dosage: 1DF
  2. AMIODARONE HCL [Concomitant]
     Indication: ATRIAL FIBRILLATION
     Dosage: 1DF
  3. POTASSIUM [Concomitant]
     Indication: PROPHYLAXIS
  4. PEMETREXED DISODIUM [Suspect]
     Indication: NON-SMALL CELL LUNG CANCER
     Route: 042
     Dates: start: 20110923
  5. CARBOPLATIN [Suspect]
     Indication: NON-SMALL CELL LUNG CANCER
     Dosage: 5 AUC
     Route: 042
     Dates: start: 20110923
  6. CARBOPLATIN [Suspect]
     Dosage: 4 AUC
     Dates: start: 20111014
  7. ASPIRIN [Concomitant]
     Indication: MYOCARDIAL INFARCTION
     Dosage: 1DF
  8. SIMVASTATIN [Concomitant]
     Indication: HYPERLIPIDAEMIA
     Dosage: 1DF
  9. METOCLOPRAMIDE [Concomitant]
     Indication: HYPERTENSION
     Dosage: 1DF
  10. PANTOPRAZOLE [Concomitant]
     Indication: PROPHYLAXIS
     Dosage: 1DF
  11. SALMETEROL XINAFOATE/FLUTICASONE PROPIONATE [Concomitant]
     Indication: CHRONIC OBSTRUCTIVE PULMONARY DISEASE
     Dosage: DOSE: 50/250UG 1DF
  12. PEMETREXED DISODIUM [Suspect]
     Dates: start: 20111014
  13. FUROSEMIDE [Concomitant]
     Indication: HYPERTENSION
  14. METOCLOPRAMIDE [Concomitant]
     Indication: NAUSEA
     Dosage: DOSE: 36 DROPS PRN 1DFX4/DAY
  15. AVASTIN [Suspect]
     Indication: NON-SMALL CELL LUNG CANCER
     Dosage: DATE OF LAST DOSE PRIOR TO EVENT: 24/JAN/2012
     Route: 042
     Dates: start: 20110923
  16. RAMIPRIL [Concomitant]
     Indication: HYPERTENSION
     Dosage: 1DF
  17. TIOPRONIN [Concomitant]
     Indication: CHRONIC OBSTRUCTIVE PULMONARY DISEASE
  18. ONDANSETRON [Concomitant]
     Indication: NAUSEA
     Dosage: PRN 1DFX2/D

REACTIONS (5)
  - DIARRHOEA [None]
  - PNEUMONIA [None]
  - CHOLECYSTITIS [None]
  - DYSPNOEA [None]
  - LUNG INFECTION [None]
